FAERS Safety Report 25931312 (Version 2)
Quarter: 2025Q4

REPORT INFORMATION
  Report Type: Report from Study
  Country: US (occurrence: US)
  Receive Date: 20251016
  Receipt Date: 20251119
  Transmission Date: 20260118
  Serious: Yes (Other)
  Sender: PFIZER
  Company Number: US-PFIZER INC-PV202500122484

PATIENT
  Age: 51 Year
  Sex: Female

DRUGS (4)
  1. IBRANCE [Suspect]
     Active Substance: PALBOCICLIB
     Indication: Breast cancer female
     Dosage: DAILY FOR THREE WEEKS WITH ONE WEEK OFF
     Route: 048
     Dates: start: 20250930
  2. IBRANCE [Suspect]
     Active Substance: PALBOCICLIB
     Dosage: 100 MG ORALLY (TABLET) DAILY FOR 21 DAYS AND OFF 7 DAYS
     Route: 048
     Dates: start: 20251028
  3. LUPRON [Concomitant]
     Active Substance: LEUPROLIDE ACETATE
     Dosage: INJECTION, PER DOCTOR^S SCHEDULE
  4. ANASTROZOLE [Concomitant]
     Active Substance: ANASTROZOLE
     Dosage: UNK, DAILY
     Route: 048

REACTIONS (9)
  - Renal impairment [Unknown]
  - White blood cell count decreased [Unknown]
  - Blood creatinine increased [Unknown]
  - Fatigue [Unknown]
  - Throat irritation [Unknown]
  - Chest discomfort [Unknown]
  - Red blood cell count decreased [Unknown]
  - Joint stiffness [Unknown]
  - Stress [Unknown]

NARRATIVE: CASE EVENT DATE: 20250101
